FAERS Safety Report 5191070-4 (Version None)
Quarter: 2006Q4

REPORT INFORMATION
  Report Type: 
  Country: None (occurrence: None)
  Receive Date: 20061215
  Receipt Date: 20061215
  Transmission Date: 20070319
  Serious: Yes (Other)
  Sender: FDA-Public Use
  Company Number: None

PATIENT
  Sex: Male

DRUGS (2)
  1. ARICEPT [Suspect]
     Indication: DEMENTIA ALZHEIMER'S TYPE
     Dosage: 10 MG DAILY  PO
     Route: 048
     Dates: start: 20061012, end: 20061027
  2. BENADRYL [Suspect]

REACTIONS (3)
  - CONFUSIONAL STATE [None]
  - FALL [None]
  - PHARMACEUTICAL PRODUCT COMPLAINT [None]
